FAERS Safety Report 6956585-4 (Version None)
Quarter: 2010Q3

REPORT INFORMATION
  Report Type: 
  Country: None (occurrence: None)
  Receive Date: 20100830
  Receipt Date: 20100830
  Transmission Date: 20110219
  Serious: No
  Sender: FDA-Public Use
  Company Number: US-ROXANE LABORATORIES, INC.-2010-RO-01162RO

PATIENT

DRUGS (1)
  1. AZATHIOPRINE [Suspect]

REACTIONS (1)
  - ALOPECIA [None]
